FAERS Safety Report 21955505 (Version 4)
Quarter: 2024Q4

REPORT INFORMATION
  Report Type: Spontaneous
  Country: US (occurrence: US)
  Receive Date: 20230206
  Receipt Date: 20241122
  Transmission Date: 20250115
  Serious: No
  Sender: BIOGEN
  Company Number: US-BIOGEN-2021BI01060460

PATIENT
  Sex: Male
  Weight: 160.26 kg

DRUGS (4)
  1. VUMERITY [Suspect]
     Active Substance: DIROXIMEL FUMARATE
     Indication: Multiple sclerosis
     Route: 050
     Dates: start: 20210721
  2. VUMERITY [Suspect]
     Active Substance: DIROXIMEL FUMARATE
     Route: 050
     Dates: start: 20210601
  3. METFORMIN [Concomitant]
     Active Substance: METFORMIN HYDROCHLORIDE
     Route: 050
  4. GLIMEPIRIDE [Concomitant]
     Active Substance: GLIMEPIRIDE
     Route: 050

REACTIONS (16)
  - Underdose [Recovered/Resolved]
  - Product dose omission issue [Recovered/Resolved]
  - Pain [Not Recovered/Not Resolved]
  - Blood glucose decreased [Not Recovered/Not Resolved]
  - Oedema peripheral [Not Recovered/Not Resolved]
  - Bone pain [Not Recovered/Not Resolved]
  - Gait inability [Unknown]
  - Mobility decreased [Unknown]
  - Stress [Unknown]
  - Overweight [Unknown]
  - Multiple sclerosis [Unknown]
  - Muscle spasms [Unknown]
  - Blood test abnormal [Unknown]
  - Fall [Recovered/Resolved]
  - Hypertension [Recovered/Resolved]
  - Illness [Recovered/Resolved]

NARRATIVE: CASE EVENT DATE: 20210101
